FAERS Safety Report 15824023 (Version 3)
Quarter: 2020Q4

REPORT INFORMATION
  Report Type: Spontaneous
  Country: US (occurrence: US)
  Receive Date: 20190114
  Receipt Date: 20201027
  Transmission Date: 20210113
  Serious: No
  Sender: FDA-Public Use
  Company Number: US-PFIZER INC-2019017836

PATIENT
  Age: 72 Year
  Sex: Female
  Weight: 63.5 kg

DRUGS (1)
  1. ATORVASTATIN CALCIUM. [Suspect]
     Active Substance: ATORVASTATIN CALCIUM
     Indication: LIPIDS INCREASED
     Dosage: 20 MG, 1X/DAY
     Route: 048

REACTIONS (7)
  - Chest pain [Unknown]
  - Musculoskeletal chest pain [Unknown]
  - Arthralgia [Unknown]
  - Back pain [Unknown]
  - Myalgia [Unknown]
  - Illness [Unknown]
  - Dyspnoea [Unknown]
